FAERS Safety Report 23854814 (Version 1)
Quarter: 2024Q2

REPORT INFORMATION
  Report Type: Spontaneous
  Country: US (occurrence: US)
  Receive Date: 20240514
  Receipt Date: 20240514
  Transmission Date: 20240716
  Serious: Yes (Hospitalization)
  Sender: FDA-Public Use
  Company Number: US-COOPERSURGICAL, INC.-2024CPS001152

PATIENT
  Age: 32 Year
  Sex: Female
  Weight: 58.05 kg

DRUGS (3)
  1. PARAGARD T 380A [Suspect]
     Active Substance: COPPER
     Indication: Contraception
     Dosage: UNK
     Dates: start: 202104, end: 20240322
  2. VITAMIN C [Concomitant]
     Active Substance: ASCORBIC ACID
  3. ZINC [Concomitant]
     Active Substance: PYRITHIONE ZINC\ZINC\ZINC CHLORIDE

REACTIONS (24)
  - Alcohol withdrawal syndrome [Unknown]
  - Hypothyroidism [Unknown]
  - Acne [Recovered/Resolved]
  - Fatigue [Recovering/Resolving]
  - Personality change [Recovered/Resolved]
  - Self esteem decreased [Recovering/Resolving]
  - Anxiety [Recovered/Resolved]
  - Agitation [Recovered/Resolved]
  - Decreased appetite [Recovered/Resolved]
  - Mental disorder [Recovering/Resolving]
  - General physical health deterioration [Recovering/Resolving]
  - Depressed mood [Recovered/Resolved]
  - Tachyphrenia [Recovered/Resolved]
  - Vitamin A decreased [Unknown]
  - Vitamin C decreased [Unknown]
  - Blood albumin decreased [Unknown]
  - Device toxicity [Unknown]
  - Palpitations [Unknown]
  - Skin atrophy [Unknown]
  - Judgement impaired [Recovered/Resolved]
  - Blood copper increased [Unknown]
  - Device material issue [Recovered/Resolved]
  - Anaemia [Unknown]
  - Unevaluable event [Unknown]

NARRATIVE: CASE EVENT DATE: 20210401
